FAERS Safety Report 19973439 (Version 1)
Quarter: 2021Q4

REPORT INFORMATION
  Report Type: Spontaneous
  Country: US (occurrence: US)
  Receive Date: 20211020
  Receipt Date: 20211020
  Transmission Date: 20220303
  Serious: No
  Sender: FDA-Public Use
  Company Number: None

PATIENT
  Age: 64 Year
  Sex: Female
  Weight: 85.5 kg

DRUGS (6)
  1. NIFEDIPINE [Suspect]
     Active Substance: NIFEDIPINE
     Indication: Hypertension
     Dosage: ?          QUANTITY:1 TABLET(S);
     Route: 048
     Dates: start: 20210525, end: 20210930
  2. FERROUS SULFATE [Concomitant]
     Active Substance: FERROUS SULFATE
  3. CLONIDINE [Concomitant]
     Active Substance: CLONIDINE
  4. VITAMIN D3 [Concomitant]
     Active Substance: CHOLECALCIFEROL
  5. FLONASE [Concomitant]
     Active Substance: FLUTICASONE PROPIONATE
  6. HYDROXYUREA [Concomitant]
     Active Substance: HYDROXYUREA

REACTIONS (4)
  - Peripheral swelling [None]
  - Rash pruritic [None]
  - Weight increased [None]
  - Skin tightness [None]

NARRATIVE: CASE EVENT DATE: 20210525
